FAERS Safety Report 6067998-X (Version None)
Quarter: 2009Q1

REPORT INFORMATION
  Report Type: 
  Country: None (occurrence: None)
  Receive Date: 20090206
  Receipt Date: 20090203
  Transmission Date: 20090719
  Serious: Yes (Other)
  Sender: FDA-Public Use
  Company Number: US-ASTRAZENECA-2009UW03171

PATIENT
  Age: 55 Year
  Sex: Female

DRUGS (2)
  1. CRESTOR [Suspect]
     Route: 048
     Dates: start: 20080101
  2. TOPROL-XL [Concomitant]
     Route: 048

REACTIONS (1)
  - HEPATIC STEATOSIS [None]
